FAERS Safety Report 15017597 (Version 2)
Quarter: 2018Q3

REPORT INFORMATION
  Report Type: Spontaneous
  Country: PT (occurrence: PT)
  Receive Date: 20180615
  Receipt Date: 20180719
  Transmission Date: 20181010
  Serious: Yes (Death, Disabling)
  Sender: FDA-Public Use
  Company Number: PHHY2018PT021757

PATIENT
  Age: 76 Year
  Sex: Male
  Weight: 57 kg

DRUGS (6)
  1. NOLOTIL [Concomitant]
     Indication: PAIN
     Dosage: 1 DF, Q8H
     Route: 048
  2. VOTRIENT [Suspect]
     Active Substance: PAZOPANIB HYDROCHLORIDE
     Indication: RENAL CELL CARCINOMA
     Dosage: 800 MG, QD
     Route: 048
     Dates: start: 20180109
  3. FOLIC ACID. [Concomitant]
     Active Substance: FOLIC ACID
     Indication: ANAEMIA
     Dosage: 5 MG, QD
     Route: 048
  4. ORAMORPH [Concomitant]
     Active Substance: MORPHINE SULFATE
     Indication: PAIN
     Dosage: 16 GTT, QD
     Route: 048
     Dates: end: 20180307
  5. HYDROMORPHONE [Concomitant]
     Active Substance: HYDROMORPHONE
     Indication: PAIN
     Dosage: 24 MG, QD (16 + 8 MG/DAY)
     Route: 048
  6. VELLOFENT [Concomitant]
     Indication: PAIN
     Dosage: 1 DF, QD
     Route: 048

REACTIONS (5)
  - Dyspnoea [Fatal]
  - Pallor [Fatal]
  - Mucosal discolouration [Fatal]
  - Dehydration [Fatal]
  - Fatigue [Fatal]

NARRATIVE: CASE EVENT DATE: 20180314
